FAERS Safety Report 6136984-3 (Version None)
Quarter: 2009Q1

REPORT INFORMATION
  Report Type: 
  Country: None (occurrence: None)
  Receive Date: 20090330
  Receipt Date: 20090324
  Transmission Date: 20090719
  Serious: Yes (Death)
  Sender: FDA-Public Use
  Company Number: US-CELGENEUS-163-21880-09031635

PATIENT
  Sex: Male

DRUGS (1)
  1. REVLIMID [Suspect]
     Indication: MALIGNANT SOFT TISSUE NEOPLASM
     Route: 048
     Dates: start: 20080801

REACTIONS (1)
  - DISEASE PROGRESSION [None]
